FAERS Safety Report 5381905-4 (Version None)
Quarter: 2007Q2

REPORT INFORMATION
  Report Type: 
  Country: None (occurrence: None)
  Receive Date: 20070629
  Receipt Date: 20070313
  Transmission Date: 20071010
  Serious: No
  Sender: FDA-Public Use
  Company Number: PHEH2006US12931

PATIENT
  Age: 40 Year
  Sex: Female
  Weight: 48.5 kg

DRUGS (6)
  1. EXJADE [Suspect]
     Dosage: 1000 MG, QD, ORAL : 500 MG, QD, ORAL : 500 MG, QD, ORAL : 500 MG, QD, ORAL
     Route: 048
     Dates: start: 20060101, end: 20060501
  2. EXJADE [Suspect]
     Dosage: 1000 MG, QD, ORAL : 500 MG, QD, ORAL : 500 MG, QD, ORAL : 500 MG, QD, ORAL
     Route: 048
     Dates: start: 20060501, end: 20060801
  3. EXJADE [Suspect]
     Dosage: 1000 MG, QD, ORAL : 500 MG, QD, ORAL : 500 MG, QD, ORAL : 500 MG, QD, ORAL
     Route: 048
     Dates: start: 20060801, end: 20060901
  4. EXJADE [Suspect]
     Dosage: 1000 MG, QD, ORAL : 500 MG, QD, ORAL : 500 MG, QD, ORAL : 500 MG, QD, ORAL
     Route: 048
     Dates: start: 20060901, end: 20061101
  5. MULTIVITAMINS (ASCORBIC ACID, ERGOCALCIFEROL, FOLIC ACID, NICOTINAMIDE [Concomitant]
  6. DETROL [Concomitant]

REACTIONS (9)
  - BLOOD IRON INCREASED [None]
  - BLOOD UREA INCREASED [None]
  - CANDIDIASIS [None]
  - HAEMATOCRIT DECREASED [None]
  - HAEMOGLOBIN DECREASED [None]
  - ORAL PAIN [None]
  - PARAESTHESIA [None]
  - RED BLOOD CELL COUNT DECREASED [None]
  - SERUM FERRITIN INCREASED [None]
